FAERS Safety Report 20983888 (Version 8)
Quarter: 2022Q4

REPORT INFORMATION
  Report Type: Report from Study
  Country: US (occurrence: US)
  Receive Date: 20220621
  Receipt Date: 20221230
  Transmission Date: 20230113
  Serious: Yes (Hospitalization, Other)
  Sender: FDA-Public Use
  Company Number: US-ABBVIE-21K-163-4076472-00

PATIENT
  Age: 76 Year
  Sex: Male

DRUGS (2)
  1. IMBRUVICA [Suspect]
     Active Substance: IBRUTINIB
     Indication: Chronic lymphocytic leukaemia
     Route: 048
     Dates: start: 201909, end: 202206
  2. IMBRUVICA [Suspect]
     Active Substance: IBRUTINIB
     Indication: Chronic lymphocytic leukaemia
     Dosage: THE END DATE OF HOSPITALIZATION WAS 2022.
     Route: 048
     Dates: start: 20221102

REACTIONS (17)
  - Dyspnoea [Unknown]
  - Pneumonia [Unknown]
  - Gastrointestinal haemorrhage [Recovering/Resolving]
  - Cough [Unknown]
  - Hospitalisation [Recovered/Resolved]
  - Dysphonia [Unknown]
  - Paraesthesia [Unknown]
  - Haemoglobin decreased [Unknown]
  - Renal impairment [Unknown]
  - Ageusia [Unknown]
  - Asthenia [Unknown]
  - Weight decreased [Unknown]
  - Hospitalisation [Unknown]
  - Hypophagia [Recovered/Resolved]
  - Rash macular [Unknown]
  - Night blindness [Unknown]
  - Decreased appetite [Recovered/Resolved]

NARRATIVE: CASE EVENT DATE: 20210601
